FAERS Safety Report 17380495 (Version 1)
Quarter: 2020Q1

REPORT INFORMATION
  Report Type: Spontaneous
  Country: US (occurrence: US)
  Receive Date: 20200206
  Receipt Date: 20200206
  Transmission Date: 20200409
  Serious: Yes (Hospitalization)
  Sender: FDA-Public Use
  Company Number: None

PATIENT
  Age: 73 Year
  Sex: Male
  Weight: 112.5 kg

DRUGS (10)
  1. PROTONIX [Concomitant]
     Active Substance: PANTOPRAZOLE SODIUM
  2. METFORMIN [Concomitant]
     Active Substance: METFORMIN HYDROCHLORIDE
  3. VIT D [Concomitant]
     Active Substance: VITAMIN D NOS
  4. UBIQUINOL [Concomitant]
     Active Substance: UBIQUINOL
  5. ATORVASTATIN, 40MG TABLETS [Suspect]
     Active Substance: ATORVASTATIN CALCIUM
     Indication: LOW DENSITY LIPOPROTEIN INCREASED
     Dosage: ?          QUANTITY:1 TABLET(S);?
     Route: 048
  6. MULTIVITAMIN [Concomitant]
     Active Substance: VITAMINS
  7. ZETIA [Concomitant]
     Active Substance: EZETIMIBE
  8. MELOXICAM. [Concomitant]
     Active Substance: MELOXICAM
  9. ASA [Concomitant]
     Active Substance: ASPIRIN
  10. ALLEGRA [Concomitant]
     Active Substance: FEXOFENADINE HYDROCHLORIDE

REACTIONS (3)
  - Amnesia [None]
  - Therapy cessation [None]
  - Transient global amnesia [None]

NARRATIVE: CASE EVENT DATE: 20200120
